FAERS Safety Report 8193271 (Version 4)
Quarter: 2013Q1

REPORT INFORMATION
  Report Type: Spontaneous
  Country: CA (occurrence: None)
  Receive Date: 20111013
  Receipt Date: 20121214
  Transmission Date: 20140127
  Serious: Yes (Hospitalization)
  Sender: FDA-Public Use
  Company Number: CA-006449

PATIENT
  Age: 85 Year
  Sex: Male
  Weight: 70 kg

DRUGS (10)
  1. FIRMAGON [Suspect]
     Indication: PROSTATE CANCER
     Dosage: 240 MG 1X SUBCUTANEOUS, (80 MG 1X/MONTH SUBCUTANEOUS)
     Route: 058
     Dates: start: 20110705
  2. ASA [Concomitant]
  3. PLAVIX [Concomitant]
  4. TYLENOL/00020001/ [Concomitant]
  5. LOPRESSOR [Concomitant]
  6. PANTOLOC [Concomitant]
  7. BICALUTAMIDE [Concomitant]
  8. ATORVASTATIN [Concomitant]
  9. CALCIUM [Concomitant]
  10. BICALUTAMIDE [Concomitant]

REACTIONS (18)
  - Injection site erythema [None]
  - Injection site nodule [None]
  - Dizziness [None]
  - Headache [None]
  - Pollakiuria [None]
  - Pain in extremity [None]
  - Gait disturbance [None]
  - Hot flush [None]
  - Back pain [None]
  - Fatigue [None]
  - Breast swelling [None]
  - Breast pain [None]
  - Abdominal pain [None]
  - Dyspepsia [None]
  - Fatigue [None]
  - Gait disturbance [None]
  - Micturition urgency [None]
  - Testicular atrophy [None]
